FAERS Safety Report 9664426 (Version 1)
Quarter: 2013Q4

REPORT INFORMATION
  Report Type: Spontaneous
  Country: US (occurrence: None)
  Receive Date: 20131030
  Receipt Date: 20131030
  Transmission Date: 20140711
  Serious: No
  Sender: FDA-Public Use
  Company Number: None

PATIENT
  Age: 78 Year
  Sex: Female
  Weight: 84 kg

DRUGS (11)
  1. VANCOMYCIN [Suspect]
     Dosage: 750 MG ( 1 IV BAG) QD INTRAVENOUS
     Route: 042
     Dates: start: 20131028, end: 20131028
  2. METOPROLOL [Concomitant]
  3. ZITHROMAX [Concomitant]
  4. TRAMADOL [Concomitant]
  5. LASIX [Concomitant]
  6. KCL 10 MEQ [Concomitant]
  7. KLONOPIN [Concomitant]
  8. CLONIDINE [Concomitant]
  9. GLIPIZIDE [Concomitant]
  10. ISOSORBIDE MONONITRATE [Concomitant]
  11. LEVAQUIN [Concomitant]

REACTIONS (3)
  - Chest pain [None]
  - Dyspnoea [None]
  - Burning sensation [None]
